FAERS Safety Report 4362807-9 (Version None)
Quarter: 2004Q2

REPORT INFORMATION
  Report Type: 
  Country: None (occurrence: None)
  Receive Date: 20040517
  Receipt Date: 20040212
  Transmission Date: 20050107
  Serious: No
  Sender: FDA-Public Use
  Company Number: S04-USA-00742-01

PATIENT
  Age: 68 Year
  Sex: Female

DRUGS (8)
  1. NAMENDA [Suspect]
     Indication: DEMENTIA ALZHEIMER'S TYPE
     Dosage: 5 MG QD PO
     Route: 048
     Dates: start: 20040201, end: 20040201
  2. NAMENDA [Suspect]
     Indication: DEMENTIA ALZHEIMER'S TYPE
     Dosage: 2.5 MG QD PO
     Route: 048
     Dates: start: 20040201, end: 20040201
  3. NAMENDA [Suspect]
     Indication: DEMENTIA ALZHEIMER'S TYPE
     Dosage: 5 MG ONCE PO
     Route: 048
     Dates: start: 20040201, end: 20040201
  4. NAMENDA [Suspect]
     Indication: DEMENTIA ALZHEIMER'S TYPE
     Dosage: 2.5 MG BID PO
     Route: 048
     Dates: start: 20040201
  5. AMARYL (GLIMPIRIDE) [Concomitant]
  6. ENALAPRIL [Concomitant]
  7. LOVASTATIN [Concomitant]
  8. ARICEPT [Concomitant]

REACTIONS (1)
  - DIARRHOEA [None]
